FAERS Safety Report 7592166-X (Version None)
Quarter: 2011Q3

REPORT INFORMATION
  Report Type: 
  Country: None (occurrence: None)
  Receive Date: 20110705
  Receipt Date: 20110705
  Transmission Date: 20111222
  Serious: Yes (Life-Threatening, Disabling)
  Sender: FDA-Public Use
  Company Number: None

PATIENT
  Age: 6 Year
  Sex: Male
  Weight: 25 kg

DRUGS (1)
  1. PARADIGM VEO INSULIN PUMP [Suspect]
     Indication: TYPE 1 DIABETES MELLITUS
     Dates: start: 20110330, end: 20110514

REACTIONS (3)
  - MEDICATION ERROR [None]
  - HYPOGLYCAEMIA [None]
  - INCORRECT DOSE ADMINISTERED BY DEVICE [None]
